FAERS Safety Report 8547614-5 (Version None)
Quarter: 2012Q3

REPORT INFORMATION
  Report Type: 
  Country: None (occurrence: None)
  Receive Date: 20120727
  Receipt Date: 20120329
  Transmission Date: 20120928
  Serious: Yes (Hospitalization)
  Sender: FDA-Public Use
  Company Number: US-ASTRAZENECA-2012SE19848

PATIENT
  Age: 704 Month
  Sex: Male

DRUGS (9)
  1. PLAVIX [Concomitant]
     Dates: end: 20120201
  2. MULTI-VITAMIN [Concomitant]
  3. SEROQUEL [Suspect]
     Indication: SLEEP DISORDER
     Route: 048
     Dates: start: 20100301, end: 20111201
  4. PAXIL [Concomitant]
  5. ASPIRIN [Concomitant]
  6. SIMVASTATIN [Concomitant]
  7. LISINOPRIL AND HYDROCHLOROTHIAZIDE [Concomitant]
  8. SEROQUEL [Suspect]
     Indication: DEPRESSION
     Route: 048
     Dates: start: 20100301, end: 20111201
  9. AGGRENOX [Concomitant]

REACTIONS (5)
  - SOMNOLENCE [None]
  - ADVERSE EVENT [None]
  - ASTHENIA [None]
  - CEREBROVASCULAR ACCIDENT [None]
  - DEPRESSION [None]
